FAERS Safety Report 8555217 (Version 2)
Quarter: 2012Q4

REPORT INFORMATION
  Report Type: Spontaneous
  Country: US (occurrence: None)
  Receive Date: 20120503
  Receipt Date: 20120910
  Transmission Date: 20130627
  Serious: Yes (Other)
  Sender: FDA-Public Use
  Company Number: DSA_56318_2012

PATIENT
  Sex: Male

DRUGS (62)
  1. ELIDEL [Suspect]
     Indication: ECZEMA
     Route: 061
     Dates: start: 2001
  2. ELIDEL [Suspect]
     Indication: ECZEMA
     Dosage: DF
     Dates: start: 2005
  3. HYDROCODONE BITARTRATE [Concomitant]
  4. HYDROXYZINE [Concomitant]
  5. CHONDROITIN [Concomitant]
  6. MULTIVITAMINS [Concomitant]
  7. COUMADIN /00014802/ [Concomitant]
  8. VENTOLIN /00139501/ [Concomitant]
  9. ARISTOCORT [Concomitant]
  10. IBUPROFEN [Concomitant]
  11. ATIVAN [Concomitant]
  12. FLONASE [Concomitant]
  13. DEPO-MEDROL [Concomitant]
  14. ZOMETA [Concomitant]
  15. AREDIA [Concomitant]
  16. SULFAMETHOXYPYRAZINE/TRIMETHOPRIM [Concomitant]
  17. ALBUTEROL /00139501/ [Concomitant]
  18. ZITHROMAX [Concomitant]
  19. RANITIDINE [Concomitant]
  20. WARFARIN SODIUM [Concomitant]
  21. ACYCLOVIR /00587301/ [Concomitant]
  22. TAMOXIFEN CITRATE [Concomitant]
  23. PEPCID /00706001/ [Concomitant]
  24. IZOFRAN /00955301/ [Concomitant]
  25. BENADRYL /00000402/ [Concomitant]
  26. HABITROL /01033301/ [Concomitant]
  27. CODEINE SULFATE [Concomitant]
  28. CLARITIN /00917501/ [Concomitant]
  29. CHANTIX [Concomitant]
  30. RESTORIL /00393701/ [Concomitant]
  31. BEXTRA /01401501/ [Concomitant]
  32. NAPROXEN [Concomitant]
  33. POLYMYXIN B SULFATE W/TRIMETHOPRIM SULFATE [Concomitant]
  34. VIOXX [Concomitant]
  35. DARVOCET-N 50 [Concomitant]
  36. ATARAX /00058401/ [Concomitant]
  37. FLUCONAZOLE [Concomitant]
  38. NEUPOGEN [Concomitant]
  39. TYLENOL REGULAR STRENGTH [Concomitant]
  40. CHLORHEXIDINE GLUCONATE [Concomitant]
  41. AMPHOTERICIN B [Concomitant]
  42. BECONASE AQ [Concomitant]
  43. HEPARIN [Concomitant]
  44. METOCLOPRAMIDE [Concomitant]
  45. DEMEROL [Concomitant]
  46. ACTIVASE [Concomitant]
  47. MULTIVITAMIN /02358601/ [Concomitant]
  48. PERIDEX /00016001/ [Concomitant]
  49. CARBOPLATIN [Concomitant]
  50. CISPLATIN [Concomitant]
  51. CYTOXAN [Concomitant]
  52. DESFERAL [Concomitant]
  53. DOXIL /00330904/ [Concomitant]
  54. FLUDARABINE PHOSPHATE [Concomitant]
  55. GEMCITABINE [Concomitant]
  56. INTERFERON NOS [Concomitant]
  57. NAVELBINE [Concomitant]
  58. RITUXAN [Concomitant]
  59. TAXOL [Concomitant]
  60. TAXOTERE [Concomitant]
  61. TETRACYCLINE [Concomitant]
  62. KETOCONAZOLE [Concomitant]

REACTIONS (59)
  - Plasma cell myeloma [None]
  - Weight decreased [None]
  - Bacterial infection [None]
  - Blood culture positive [None]
  - Type 2 diabetes mellitus [None]
  - Hepatic steatosis [None]
  - Drug ineffective [None]
  - Sleep disorder [None]
  - Erythema [None]
  - Rash papular [None]
  - Scratch [None]
  - Rash pruritic [None]
  - Seborrhoeic dermatitis [None]
  - Rosacea [None]
  - Dermatitis atopic [None]
  - Dermatitis contact [None]
  - Ventricular hypertrophy [None]
  - Pyrexia [None]
  - Device related infection [None]
  - Staphylococcal bacteraemia [None]
  - Pharyngitis [None]
  - Bronchitis [None]
  - Herpes zoster [None]
  - Neuropathy peripheral [None]
  - Cataract operation [None]
  - Eye pain [None]
  - Dry eye [None]
  - Vitreous floaters [None]
  - Photopsia [None]
  - Insomnia [None]
  - Hyperglycaemia [None]
  - Hypothyroidism [None]
  - Hyperlipidaemia [None]
  - Pain [None]
  - Haemorrhage [None]
  - Dyspnoea [None]
  - Nausea [None]
  - Vomiting [None]
  - Stomatitis [None]
  - Folliculitis [None]
  - Depression [None]
  - Apathy [None]
  - Fatigue [None]
  - Increased appetite [None]
  - Arthralgia [None]
  - Musculoskeletal disorder [None]
  - Bone cancer [None]
  - Hypermetropia [None]
  - Presbyopia [None]
  - Astigmatism [None]
  - Fungal infection [None]
  - Arthritis [None]
  - Rotator cuff syndrome [None]
  - Pancytopenia [None]
  - Procedural complication [None]
  - Gastrointestinal toxicity [None]
  - Cataract [None]
  - Glaucoma [None]
  - Pneumonia [None]
